FAERS Safety Report 9799523 (Version 1)
Quarter: 2014Q1

REPORT INFORMATION
  Report Type: Spontaneous
  Country: US (occurrence: US)
  Receive Date: 20140106
  Receipt Date: 20140106
  Transmission Date: 20141002
  Serious: No
  Sender: FDA-Public Use
  Company Number: US-009507513-1312USA008435

PATIENT
  Age: 2 Year
  Sex: Male
  Weight: 9.7 kg

DRUGS (1)
  1. CLARITIN ORAL SOLUTION [Suspect]
     Indication: RHINORRHOEA
     Dosage: 2.5 MG, ONCE
     Route: 048
     Dates: start: 20131215

REACTIONS (7)
  - Hallucination [Recovered/Resolved]
  - Anxiety [Recovered/Resolved]
  - Abnormal behaviour [Recovered/Resolved]
  - Snoring [Recovered/Resolved]
  - Sleep terror [Recovered/Resolved]
  - Crying [Recovered/Resolved]
  - Underdose [Recovered/Resolved]
